FAERS Safety Report 4805394-0 (Version None)
Quarter: 2005Q4

REPORT INFORMATION
  Report Type: 
  Country: None (occurrence: None)
  Receive Date: 20051017
  Receipt Date: 20051003
  Transmission Date: 20060501
  Serious: Yes (Other)
  Sender: FDA-Public Use
  Company Number: 217464

PATIENT
  Age: 36 Year
  Sex: Female
  Weight: 51.2 kg

DRUGS (7)
  1. XOLAIR (OMALIZUMAB) PWDR + SOLVENT, INJECTION SOLN, 150MG [Suspect]
     Indication: ASTHMA
     Dosage: 225 MG, Q2W, SUBCUTANEOUS
     Route: 058
     Dates: start: 20040203
  2. SINGULAIR [Concomitant]
  3. ADVAIR DISKUS 100/50 [Concomitant]
  4. ALBUTEROL [Concomitant]
  5. CLARITIN-D [Concomitant]
  6. RHINOCORT [Concomitant]
  7. ACTONEL [Concomitant]

REACTIONS (6)
  - ASTIGMATISM [None]
  - CATARACT [None]
  - EYE PAIN [None]
  - EYE PRURITUS [None]
  - LACRIMATION DECREASED [None]
  - OCULAR HYPERAEMIA [None]
